FAERS Safety Report 19595198 (Version 3)
Quarter: 2021Q3

REPORT INFORMATION
  Report Type: Report from Study
  Country: US (occurrence: US)
  Receive Date: 20210722
  Receipt Date: 20210915
  Transmission Date: 20211014
  Serious: Yes (Hospitalization)
  Sender: FDA-Public Use
  Company Number: US-TAKEDA-2021TUS032981

PATIENT
  Age: 23 Year
  Sex: Male

DRUGS (3)
  1. LANADELUMAB [Suspect]
     Active Substance: LANADELUMAB
     Indication: PROPHYLAXIS
     Dosage: 300 MILLIGRAM, Q2WEEKS
     Route: 058
  2. LANADELUMAB [Suspect]
     Active Substance: LANADELUMAB
     Indication: HEREDITARY ANGIOEDEMA
     Dosage: 300 MILLIGRAM, Q2WEEKS
     Route: 050
  3. BERINERT [Concomitant]
     Active Substance: HUMAN C1-ESTERASE INHIBITOR
     Dosage: UNK
     Route: 065

REACTIONS (8)
  - Eating disorder [Unknown]
  - Weight decreased [Unknown]
  - Gingival bleeding [Unknown]
  - Hereditary angioedema [Not Recovered/Not Resolved]
  - Inappropriate schedule of product administration [Recovered/Resolved]
  - Blister [Unknown]
  - Infection [Unknown]
  - Urticaria [Unknown]

NARRATIVE: CASE EVENT DATE: 20210623
